FAERS Safety Report 23446715 (Version 1)
Quarter: 2024Q1

REPORT INFORMATION
  Report Type: Spontaneous
  Country: US (occurrence: US)
  Receive Date: 20240126
  Receipt Date: 20240126
  Transmission Date: 20240410
  Serious: Yes (Other)
  Sender: FDA-Public Use
  Company Number: US-GSK-US2024009381

PATIENT

DRUGS (6)
  1. LAMICTAL [Interacting]
     Active Substance: LAMOTRIGINE
     Indication: Seizure
     Dosage: UNK (1.5 TABLET IN AM AND 1 TAB IN THE EVENING.)
  2. SIMVASTATIN [Concomitant]
     Active Substance: SIMVASTATIN
     Indication: Blood cholesterol
     Dosage: 40 MG, QD
  3. LEVOTHYROXINE [Concomitant]
     Active Substance: LEVOTHYROXINE\LEVOTHYROXINE SODIUM
     Indication: Thyroid disorder
     Dosage: 1 DF, QD
  4. RAMIPRIL [Concomitant]
     Active Substance: RAMIPRIL
     Indication: Hypertension
     Dosage: 1 DF, QD
  5. AMLODIPINE [Concomitant]
     Active Substance: AMLODIPINE BESYLATE
     Indication: Hypertension
     Dosage: 1 DF, QD
  6. ASPIRIN [Concomitant]
     Active Substance: ASPIRIN
     Indication: Seizure
     Dosage: 1 DF, QD

REACTIONS (1)
  - Skin cancer [Not Recovered/Not Resolved]

NARRATIVE: CASE EVENT DATE: 20230501
